FAERS Safety Report 8423581-X (Version None)
Quarter: 2012Q2

REPORT INFORMATION
  Report Type: 
  Country: None (occurrence: None)
  Receive Date: 20120608
  Receipt Date: 20120530
  Transmission Date: 20120825
  Serious: Yes (Hospitalization, Other)
  Sender: FDA-Public Use
  Company Number: JP-VERTEX PHARMACEUTICALS INC.-AE-2012-008337

PATIENT
  Age: 64 Year
  Sex: Male

DRUGS (6)
  1. PEGINTERFERON ALFA-2B [Concomitant]
     Indication: HEPATITIS C
     Route: 051
     Dates: start: 20120215, end: 20120410
  2. TELAVIC (TELAPREVIR) [Suspect]
     Indication: HEPATITIS C
     Route: 048
     Dates: start: 20120215, end: 20120416
  3. TELAVIC (TELAPREVIR) [Suspect]
     Route: 048
     Dates: start: 20120417
  4. RIBAVIRIN [Concomitant]
     Indication: HEPATITIS C
     Route: 048
     Dates: start: 20120215, end: 20120228
  5. PEGINTERFERON ALFA-2B [Concomitant]
     Route: 051
     Dates: start: 20120424
  6. RIBAVIRIN [Concomitant]
     Dates: start: 20120229

REACTIONS (6)
  - CELLULITIS [None]
  - RASH [None]
  - RENAL IMPAIRMENT [None]
  - OEDEMA DUE TO HEPATIC DISEASE [None]
  - ANAEMIA [None]
  - ASCITES [None]
